FAERS Safety Report 21074509 (Version 2)
Quarter: 2022Q3

REPORT INFORMATION
  Report Type: Spontaneous
  Country: JP (occurrence: JP)
  Receive Date: 20220713
  Receipt Date: 20220930
  Transmission Date: 20221027
  Serious: Yes (Hospitalization, Other)
  Sender: FDA-Public Use
  Company Number: JP-SA-SAC20220711002345

PATIENT
  Age: 62 Year
  Sex: Male
  Weight: 75 kg

DRUGS (12)
  1. RIFADIN [Suspect]
     Active Substance: RIFAMPIN
     Indication: Infective spondylitis
     Dosage: 450 MG, QD
     Route: 048
  2. LEVOFLOXACIN [Suspect]
     Active Substance: LEVOFLOXACIN
     Indication: Cellulitis
     Route: 048
  3. DAPTOMYCIN [Suspect]
     Active Substance: DAPTOMYCIN
     Indication: Infective spondylitis
     Dosage: 450 MG, QD
     Route: 041
  4. DAPTOMYCIN [Suspect]
     Active Substance: DAPTOMYCIN
     Dosage: 600 MG, QD
  5. ACETAMINOPHEN [Concomitant]
     Active Substance: ACETAMINOPHEN
  6. ALOGLIPTIN BENZOATE [Concomitant]
     Active Substance: ALOGLIPTIN BENZOATE
  7. METFORMIN HYDROCHLORIDE [Concomitant]
     Active Substance: METFORMIN HYDROCHLORIDE
  8. CANDESARTAN CILEXETIL [Concomitant]
     Active Substance: CANDESARTAN CILEXETIL
  9. DORIPENEM [Concomitant]
     Active Substance: DORIPENEM
     Dosage: 0.5 MG, TID
     Route: 042
  10. MINOCYCLINE HYDROCHLORIDE [Concomitant]
     Active Substance: MINOCYCLINE HYDROCHLORIDE
     Dosage: 100 MG, BID
     Route: 048
  11. CEFTAZIDIME [Concomitant]
     Active Substance: CEFTAZIDIME
  12. FEBUXOSTAT [Concomitant]
     Active Substance: FEBUXOSTAT

REACTIONS (3)
  - Infective spondylitis [Unknown]
  - Eosinophilic pneumonia [Recovered/Resolved]
  - Urinary tract infection [Unknown]
